FAERS Safety Report 8995945 (Version 2)
Quarter: 2013Q2

REPORT INFORMATION
  Report Type: Spontaneous
  Country: US (occurrence: US)
  Receive Date: 20130103
  Receipt Date: 20130419
  Transmission Date: 20140414
  Serious: Yes (Other)
  Sender: FDA-Public Use
  Company Number: CHPA2012US025820

PATIENT
  Age: 72 Year
  Sex: Male

DRUGS (5)
  1. EXCEDRIN TENSION HEADACHE [Suspect]
     Indication: MIGRAINE
     Dosage: 3 DF, PRN
     Route: 048
     Dates: end: 201112
  2. EXCEDRIN TENSION HEADACHE [Suspect]
     Dosage: 2 DF, PRN
     Route: 048
     Dates: start: 201003
  3. EXCEDRIN MIGRAINE [Suspect]
     Indication: MIGRAINE
     Dosage: 2 DF, PRN
     Route: 048
     Dates: start: 1998, end: 20100131
  4. EXCEDRIN EXTRA STRENGTH [Suspect]
     Indication: HEADACHE
     Dosage: 3 DF, PRN
     Route: 048
     Dates: end: 20100131
  5. EXCEDRIN EXTRA STRENGTH [Suspect]
     Dosage: 2 DF, PRN
     Route: 048
     Dates: start: 1960

REACTIONS (2)
  - Joint dislocation [Recovered/Resolved]
  - Migraine [Unknown]
